FAERS Safety Report 6687960-3 (Version None)
Quarter: 2010Q2

REPORT INFORMATION
  Report Type: 
  Country: None (occurrence: None)
  Receive Date: 20100420
  Receipt Date: 20100409
  Transmission Date: 20101027
  Serious: Yes (Hospitalization)
  Sender: FDA-Public Use
  Company Number: US-JNJFOC-20100403253

PATIENT
  Sex: Female
  Weight: 65.77 kg

DRUGS (7)
  1. FENTANYL CITRATE [Suspect]
     Indication: PAIN
  2. FENTANYL CITRATE [Suspect]
     Route: 062
  3. FENTANYL CITRATE [Suspect]
     Route: 062
  4. CELEXA [Concomitant]
     Indication: DEPRESSION
     Route: 048
  5. SIMVASTATIN [Concomitant]
     Indication: BLOOD CHOLESTEROL INCREASED
     Route: 048
  6. PERCOCET [Concomitant]
     Indication: BREAKTHROUGH PAIN
     Route: 048
  7. SOMA [Concomitant]
     Indication: MUSCLE RELAXANT THERAPY
     Dosage: 350 MG 2 IN MORNING AND 2 IN EVENING
     Route: 048

REACTIONS (6)
  - BACK DISORDER [None]
  - DRUG EFFECT DECREASED [None]
  - DYSURIA [None]
  - FEELING ABNORMAL [None]
  - MUSCULOSKELETAL DISORDER [None]
  - PRODUCT ADHESION ISSUE [None]
